FAERS Safety Report 4778665-4 (Version None)
Quarter: 2005Q3

REPORT INFORMATION
  Report Type: 
  Country: None (occurrence: None)
  Receive Date: 20050926
  Receipt Date: 20050831
  Transmission Date: 20060218
  Serious: Yes (Other)
  Sender: FDA-Public Use
  Company Number: PHBS2005DE12681

PATIENT
  Age: 68 Year
  Sex: Female

DRUGS (11)
  1. PAMIDRONATE DISODIUM [Suspect]
     Indication: METASTASES TO BONE
     Dosage: 90 MG, QMO
     Dates: start: 20000201, end: 20020101
  2. PEGFILGRASTIM [Concomitant]
  3. ZOLEDRONATE [Suspect]
     Indication: METASTASES TO BONE
     Dosage: 4 MG, TIW
     Route: 042
     Dates: start: 20020101, end: 20040817
  4. EXEMESTANE [Concomitant]
     Route: 065
     Dates: start: 20000201
  5. RADIATION THERAPY [Concomitant]
     Dosage: AT HWK5 TO BWK 2
     Route: 065
     Dates: start: 20011122, end: 20011222
  6. RADIATION THERAPY [Concomitant]
     Dosage: BWK 3
     Route: 065
     Dates: start: 20020731, end: 20020829
  7. VINORELBINE [Concomitant]
     Dosage: ON DAYS 1 + 8 EVERY 3 WEEKS
     Route: 065
  8. MEDROXYPROGESTERONE ACETATE [Concomitant]
     Route: 065
  9. FILGRASTIM [Concomitant]
     Route: 065
  10. GEMCITABINE [Concomitant]
     Route: 065
  11. IBANDRONATE SODIUM [Suspect]
     Dosage: 6 MG, TIW
     Route: 065
     Dates: start: 20040817

REACTIONS (13)
  - ASEPTIC NECROSIS BONE [None]
  - BONE DEBRIDEMENT [None]
  - BONE PAIN [None]
  - BONE TRIMMING [None]
  - CARBOHYDRATE ANTIGEN 15-3 INCREASED [None]
  - IMPAIRED HEALING [None]
  - INFLAMMATION [None]
  - MALIGNANT NEOPLASM PROGRESSION [None]
  - METASTASES TO LUNG [None]
  - ORAL PAIN [None]
  - OSTEOMYELITIS [None]
  - STOMATITIS [None]
  - TOOTH EXTRACTION [None]
